FAERS Safety Report 7403321-3 (Version None)
Quarter: 2011Q2

REPORT INFORMATION
  Report Type: 
  Country: None (occurrence: None)
  Receive Date: 20110408
  Receipt Date: 20110315
  Transmission Date: 20111010
  Serious: No
  Sender: FDA-Public Use
  Company Number: US-B.I. PHARMACEUTICALS,INC./RIDGEFIELD-2011-BP-08298BP

PATIENT
  Sex: Female

DRUGS (9)
  1. WELCHOL [Concomitant]
  2. PRADAXA [Suspect]
     Dosage: 300 MG
     Dates: start: 20100101, end: 20110101
  3. LOVAZA [Concomitant]
  4. PRIMIDONE [Concomitant]
     Indication: MEMORY IMPAIRMENT
  5. ZOLPIDEM [Concomitant]
     Indication: INSOMNIA
  6. PRADAXA [Suspect]
     Dosage: 150 MG
     Dates: start: 20110101
  7. AMITRIPTYLINE [Concomitant]
  8. NAMENDA [Concomitant]
     Indication: MEMORY IMPAIRMENT
  9. MULTAQ [Concomitant]

REACTIONS (2)
  - INSOMNIA [None]
  - PSYCHOMOTOR HYPERACTIVITY [None]
